FAERS Safety Report 25652969 (Version 2)
Quarter: 2025Q3

REPORT INFORMATION
  Report Type: Spontaneous
  Country: US (occurrence: US)
  Receive Date: 20250807
  Receipt Date: 20250819
  Transmission Date: 20251020
  Serious: Yes (Life-Threatening, Other)
  Sender: ALKEM
  Company Number: None

PATIENT
  Age: 62 Year
  Sex: Male

DRUGS (6)
  1. MYCOPHENOLATE MOFETIL [Suspect]
     Active Substance: MYCOPHENOLATE MOFETIL
     Indication: Uveitis
     Dosage: 1500 MILLIGRAM, QD
     Route: 065
     Dates: start: 2014
  2. MYCOPHENOLATE MOFETIL [Suspect]
     Active Substance: MYCOPHENOLATE MOFETIL
     Indication: Ocular sarcoidosis
  3. MYCOPHENOLATE MOFETIL [Suspect]
     Active Substance: MYCOPHENOLATE MOFETIL
     Indication: Immunosuppressant drug therapy
  4. PREDNISONE [Suspect]
     Active Substance: PREDNISONE
     Indication: Uveitis
     Dosage: 40 MILLIGRAM, QD (HIGH-DOSE) (INTERMITTENT COURSES)
     Route: 065
  5. PREDNISONE [Suspect]
     Active Substance: PREDNISONE
     Indication: Ocular sarcoidosis
     Dosage: 10 MILLIGRAM, QD (EVERY OTHER DAY)
     Route: 065
  6. PREDNISONE [Suspect]
     Active Substance: PREDNISONE
     Indication: Immunosuppressant drug therapy

REACTIONS (5)
  - Metastases to chest wall [Recovering/Resolving]
  - Metastases to lymph nodes [Recovering/Resolving]
  - Metastases to lung [Recovering/Resolving]
  - Skin squamous cell carcinoma recurrent [Recovering/Resolving]
  - Metastatic squamous cell carcinoma [Recovering/Resolving]

NARRATIVE: CASE EVENT DATE: 20200101
